FAERS Safety Report 5482236-4 (Version None)
Quarter: 2007Q4

REPORT INFORMATION
  Report Type: 
  Country: None (occurrence: None)
  Receive Date: 20071011
  Receipt Date: 20070926
  Transmission Date: 20080405
  Serious: Yes (Other)
  Sender: FDA-Public Use
  Company Number: FR-AMGEN-US247160

PATIENT
  Sex: Male

DRUGS (1)
  1. ENBREL [Suspect]
     Indication: SPONDYLITIS
     Dosage: UNKNOWN
     Route: 058
     Dates: end: 20070101

REACTIONS (1)
  - AORTITIS [None]
